FAERS Safety Report 5446606-2 (Version None)
Quarter: 2007Q3

REPORT INFORMATION
  Report Type: 
  Country: None (occurrence: None)
  Receive Date: 20070907
  Receipt Date: 20070829
  Transmission Date: 20080115
  Serious: No
  Sender: FDA-Public Use
  Company Number: US-PFIZER INC-2007057309

PATIENT
  Sex: Male
  Weight: 120 kg

DRUGS (7)
  1. LIPITOR [Suspect]
     Indication: BLOOD CHOLESTEROL INCREASED
     Dates: start: 20061201, end: 20070710
  2. LIPITOR [Suspect]
     Indication: HYPERLIPIDAEMIA
  3. LIPITOR [Suspect]
     Indication: OBESITY
  4. TEGRETOL [Concomitant]
  5. CLONIDINE [Concomitant]
  6. RISPERDAL [Concomitant]
  7. ADVAIR DISKUS 100/50 [Concomitant]

REACTIONS (1)
  - NO ADVERSE REACTION [None]
